FAERS Safety Report 4908989-9 (Version None)
Quarter: 2006Q1

REPORT INFORMATION
  Report Type: 
  Country: None (occurrence: None)
  Receive Date: 20060210
  Receipt Date: 20060210
  Transmission Date: 20060701
  Serious: Yes (Other)
  Sender: FDA-Public Use
  Company Number: None

PATIENT
  Age: 73 Year
  Sex: Female
  Weight: 76.2043 kg

DRUGS (7)
  1. TARGRETIN [Suspect]
     Indication: THYROID GLAND CANCER
     Dosage: 300 MG/M2=7TAB QD PO
     Route: 048
     Dates: start: 20050808, end: 20060208
  2. TAXOTERE [Suspect]
     Dosage: 45.5 MG Q WK X3/4 WEEK IV DRIP
     Route: 041
     Dates: start: 20050808, end: 20060201
  3. SYNTHROID [Concomitant]
  4. LIPITOR [Concomitant]
  5. LOVENOX [Concomitant]
  6. LORAZEPAM [Concomitant]
  7. ARANESP [Concomitant]

REACTIONS (3)
  - ESCHERICHIA URINARY TRACT INFECTION [None]
  - NEUTROPHIL COUNT DECREASED [None]
  - WHITE BLOOD CELL COUNT DECREASED [None]
